FAERS Safety Report 18599660 (Version 1)
Quarter: 2020Q4

REPORT INFORMATION
  Report Type: Spontaneous
  Country: US (occurrence: US)
  Receive Date: 20201209
  Receipt Date: 20201209
  Transmission Date: 20210114
  Serious: No
  Sender: FDA-Public Use
  Company Number: None

PATIENT
  Age: 35 Year
  Sex: Female
  Weight: 58.5 kg

DRUGS (7)
  1. ZINC. [Concomitant]
     Active Substance: ZINC
  2. CPAP THERAPY [Concomitant]
  3. INOSITOL [Concomitant]
     Active Substance: INOSITOL
  4. BIOTIN [Concomitant]
     Active Substance: BIOTIN
  5. DUPIXENT [Suspect]
     Active Substance: DUPILUMAB
     Indication: DERMATITIS ATOPIC
     Dosage: ?          QUANTITY:1 INJECTION(S);OTHER FREQUENCY:300MG / 2 WEEKS;OTHER ROUTE:INJECTED SUBCUTANEOUSLY?
     Route: 058
     Dates: start: 20200826, end: 20201021
  6. VITAMIN D [Concomitant]
     Active Substance: VITAMIN D NOS
  7. VITAMIN C [Concomitant]
     Active Substance: ASCORBIC ACID

REACTIONS (15)
  - Visual impairment [None]
  - Fatigue [None]
  - Back pain [None]
  - Gout [None]
  - Rash [None]
  - Nausea [None]
  - Alopecia [None]
  - Insomnia [None]
  - Arthralgia [None]
  - Headache [None]
  - Sleep disorder [None]
  - Eye pain [None]
  - Weight increased [None]
  - Dyspepsia [None]
  - Pain in extremity [None]

NARRATIVE: CASE EVENT DATE: 20201021
